FAERS Safety Report 5303568-6 (Version None)
Quarter: 2007Q2

REPORT INFORMATION
  Report Type: 
  Country: None (occurrence: None)
  Receive Date: 20070420
  Receipt Date: 20070411
  Transmission Date: 20071010
  Serious: Yes (Other)
  Sender: FDA-Public Use
  Company Number: US-PFIZER INC-2007029227

PATIENT
  Sex: Female
  Weight: 86.1 kg

DRUGS (3)
  1. ALDACTONE [Suspect]
     Indication: POLYCYSTIC OVARIES
  2. ALDACTONE [Suspect]
  3. METFORMIN HCL [Concomitant]

REACTIONS (5)
  - BLOOD FOLLICLE STIMULATING HORMONE ABNORMAL [None]
  - BLOOD GONADOTROPHIN DECREASED [None]
  - BLOOD LUTEINISING HORMONE ABNORMAL [None]
  - HYPERTRICHOSIS [None]
  - POLYMENORRHOEA [None]
